FAERS Safety Report 9509458 (Version 1)
Quarter: 2013Q3

REPORT INFORMATION
  Report Type: Spontaneous
  Country: BR (occurrence: BR)
  Receive Date: 20130909
  Receipt Date: 20130909
  Transmission Date: 20140515
  Serious: Yes (Other)
  Sender: FDA-Public Use
  Company Number: BR-PFIZER INC-2013254151

PATIENT
  Age: 74 Year
  Sex: Female
  Weight: 105 kg

DRUGS (3)
  1. LIPITOR [Suspect]
     Indication: BLOOD CHOLESTEROL INCREASED
     Dosage: 1 TABLET OF 40 MG, DAILY
     Route: 048
     Dates: start: 20070131
  2. SELOPRESS [Concomitant]
     Indication: HYPERTENSION
     Dosage: UNK
     Dates: start: 2003
  3. ARADOIS [Concomitant]
     Indication: HYPERTENSION
     Dosage: UNK
     Dates: start: 2003

REACTIONS (1)
  - Asthma [Unknown]
